FAERS Safety Report 6906279-6 (Version None)
Quarter: 2010Q3

REPORT INFORMATION
  Report Type: 
  Country: None (occurrence: None)
  Receive Date: 20100804
  Receipt Date: 20100726
  Transmission Date: 20110219
  Serious: Yes (Hospitalization)
  Sender: FDA-Public Use
  Company Number: US-ASTRAZENECA-2010SE34772

PATIENT
  Age: 27443 Day
  Sex: Male
  Weight: 72.6 kg

DRUGS (7)
  1. SEROQUEL [Suspect]
     Route: 048
  2. LITHIUM [Concomitant]
  3. CARBAMAZEPINE [Concomitant]
  4. GLIPIZIDE [Concomitant]
  5. FENOFIBRATE [Concomitant]
  6. ASPIRIN [Concomitant]
  7. PLAVIX [Concomitant]

REACTIONS (3)
  - ANAEMIA [None]
  - CARDIAC OPERATION [None]
  - CHEST PAIN [None]
